FAERS Safety Report 11909495 (Version 3)
Quarter: 2016Q1

REPORT INFORMATION
  Report Type: Report from Study
  Country: US (occurrence: US)
  Receive Date: 20160112
  Receipt Date: 20160208
  Transmission Date: 20160526
  Serious: Yes (Hospitalization, Other)
  Sender: FDA-Public Use
  Company Number: US-UCBSA-2016000447

PATIENT
  Age: 85 Year
  Sex: Female

DRUGS (2)
  1. ROTIGOTINE [Suspect]
     Active Substance: ROTIGOTINE
     Dosage: 3 MG, ONCE DAILY (QD)
  2. ROTIGOTINE [Suspect]
     Active Substance: ROTIGOTINE
     Indication: PARKINSON^S DISEASE
     Dosage: 4 MG, ONCE DAILY (QD)
     Route: 062
     Dates: start: 2015

REACTIONS (1)
  - Cerebrovascular accident [Recovering/Resolving]

NARRATIVE: CASE EVENT DATE: 20150611
